FAERS Safety Report 4521877-5 (Version None)
Quarter: 2004Q4

REPORT INFORMATION
  Report Type: 
  Country: None (occurrence: None)
  Receive Date: 20041207
  Receipt Date: 20041201
  Transmission Date: 20050328
  Serious: Yes (Other)
  Sender: FDA-Public Use
  Company Number: US-JNJFOC-20040808132

PATIENT
  Age: 14 Year
  Sex: Female

DRUGS (2)
  1. MOTRIN [Suspect]
     Indication: DEPRESSED MOOD
     Dosage: SEE IMAGE
  2. MOTRIN [Suspect]
     Indication: MALAISE
     Dosage: SEE IMAGE

REACTIONS (5)
  - DEPENDENCE [None]
  - DEPRESSION [None]
  - FEELING ABNORMAL [None]
  - OVERDOSE [None]
  - STOMACH DISCOMFORT [None]
